FAERS Safety Report 6771875-6 (Version None)
Quarter: 2010Q2

REPORT INFORMATION
  Report Type: 
  Country: None (occurrence: None)
  Receive Date: 20100616
  Receipt Date: 20090901
  Transmission Date: 20101027
  Serious: No
  Sender: FDA-Public Use
  Company Number: US-ASTRAZENECA-2009SE10973

PATIENT
  Sex: Male
  Weight: 86.2 kg

DRUGS (16)
  1. ENTOCORT EC CAPSULES [Suspect]
     Indication: COLITIS
     Route: 048
  2. ENTOCORT EC CAPSULES [Suspect]
     Route: 048
  3. ALLOPURINOL [Concomitant]
  4. ACYCLOVIR [Concomitant]
  5. OMEPRAZOLE [Concomitant]
  6. METOPROLOL [Concomitant]
  7. SERTRALINE HCL [Concomitant]
  8. HYDROCODONE BITARTRATE [Concomitant]
  9. OYCONTIN [Concomitant]
  10. XANAX [Concomitant]
  11. ZOMETA [Concomitant]
  12. PROCHLORPERAZINE [Concomitant]
  13. AMBIEN [Concomitant]
  14. ATIVAN [Concomitant]
  15. TRILIPIX [Concomitant]
  16. COMPAZINE [Concomitant]

REACTIONS (6)
  - ASTHENIA [None]
  - DECREASED APPETITE [None]
  - HYPOTONIA [None]
  - MEDICATION ERROR [None]
  - PYREXIA [None]
  - WEIGHT DECREASED [None]
